FAERS Safety Report 8241127-6 (Version None)
Quarter: 2012Q1

REPORT INFORMATION
  Report Type: 
  Country: None (occurrence: None)
  Receive Date: 20120328
  Receipt Date: 20120319
  Transmission Date: 20120608
  Serious: Yes (Hospitalization)
  Sender: FDA-Public Use
  Company Number: RO-BRISTOL-MYERS SQUIBB COMPANY-16463929

PATIENT
  Age: 43 Year
  Sex: Male

DRUGS (1)
  1. YERVOY [Suspect]
     Indication: METASTATIC MALIGNANT MELANOMA
     Dosage: THERAPY DATES:24FEB12,06FEB12,
     Route: 042
     Dates: start: 20120206

REACTIONS (6)
  - VOMITING [None]
  - PYREXIA [None]
  - DIARRHOEA [None]
  - DEHYDRATION [None]
  - ABDOMINAL PAIN UPPER [None]
  - HEPATIC ENZYME INCREASED [None]
